FAERS Safety Report 23760669 (Version 1)
Quarter: 2024Q2

REPORT INFORMATION
  Report Type: Spontaneous
  Country: US (occurrence: US)
  Receive Date: 20240419
  Receipt Date: 20240419
  Transmission Date: 20240716
  Serious: Yes (Other)
  Sender: FDA-Public Use
  Company Number: US-JNJFOC-20240433060

PATIENT
  Age: 71 Year
  Sex: Female
  Weight: 64.468 kg

DRUGS (4)
  1. XARELTO [Interacting]
     Active Substance: RIVAROXABAN
     Indication: Atrial fibrillation
     Route: 048
     Dates: start: 202310
  2. DILTIAZEM [Suspect]
     Active Substance: DILTIAZEM
     Route: 048
     Dates: end: 20240402
  3. FLECAINIDE ACETATE [Suspect]
     Active Substance: FLECAINIDE ACETATE
  4. METOPROLOL [Suspect]
     Active Substance: METOPROLOL
     Dosage: 1 TABLET TWICE A DAY AFTER THE ABLATION
     Route: 048

REACTIONS (5)
  - Cardiac ablation [Unknown]
  - Fatigue [Unknown]
  - Road traffic accident [Unknown]
  - Drug interaction [Unknown]
  - Heart rate decreased [Unknown]

NARRATIVE: CASE EVENT DATE: 20240220
